FAERS Safety Report 12562017 (Version 3)
Quarter: 2016Q3

REPORT INFORMATION
  Report Type: Spontaneous
  Country: US (occurrence: US)
  Receive Date: 20160715
  Receipt Date: 20160808
  Transmission Date: 20161109
  Serious: No
  Sender: FDA-Public Use
  Company Number: US-BEH-2016062810

PATIENT
  Sex: Female
  Weight: 83 kg

DRUGS (21)
  1. HIZENTRA [Suspect]
     Active Substance: HUMAN IMMUNOGLOBULIN G
     Indication: CHRONIC INFLAMMATORY DEMYELINATING POLYRADICULONEUROPATHY
     Route: 042
  2. HEPARIN [Concomitant]
     Active Substance: HEPARIN SODIUM
  3. SODIUM CHLORIDE. [Concomitant]
     Active Substance: SODIUM CHLORIDE
  4. SEROQUEL [Concomitant]
     Active Substance: QUETIAPINE FUMARATE
  5. ADVIL [Concomitant]
     Active Substance: IBUPROFEN
  6. ORPHENADRINE CITRATE. [Concomitant]
     Active Substance: ORPHENADRINE CITRATE
  7. DIPHENHYDRAMINE. [Concomitant]
     Active Substance: DIPHENHYDRAMINE
  8. HIZENTRA [Suspect]
     Active Substance: HUMAN IMMUNOGLOBULIN G
     Dosage: DIVIDED OVER 5 DAYS
     Route: 042
  9. TRILEPTAL [Concomitant]
     Active Substance: OXCARBAZEPINE
  10. VALIUM [Concomitant]
     Active Substance: DIAZEPAM
  11. OXYCODONE [Concomitant]
     Active Substance: OXYCODONE
  12. HIZENTRA [Suspect]
     Active Substance: HUMAN IMMUNOGLOBULIN G
     Route: 042
  13. VISTARIL [Concomitant]
     Active Substance: HYDROXYZINE PAMOATE
  14. LEVOXYL [Concomitant]
     Active Substance: LEVOTHYROXINE SODIUM
  15. OPANA ER [Concomitant]
     Active Substance: OXYMORPHONE HYDROCHLORIDE
  16. EPIPEN [Concomitant]
     Active Substance: EPINEPHRINE
  17. MAXAIR [Concomitant]
     Active Substance: PIRBUTEROL ACETATE
  18. HIZENTRA [Suspect]
     Active Substance: HUMAN IMMUNOGLOBULIN G
     Route: 042
  19. ACETAMINOPHEN. [Concomitant]
     Active Substance: ACETAMINOPHEN
  20. LIDOCAINE. [Concomitant]
     Active Substance: LIDOCAINE
  21. LEVORA-28 [Concomitant]

REACTIONS (2)
  - Adverse drug reaction [Unknown]
  - Headache [Unknown]
